FAERS Safety Report 14525083 (Version 1)
Quarter: 2018Q1

REPORT INFORMATION
  Report Type: Spontaneous
  Country: PL (occurrence: PL)
  Receive Date: 20180213
  Receipt Date: 20180213
  Transmission Date: 20180509
  Serious: Yes (Other)
  Sender: FDA-Public Use
  Company Number: PHHY2018PL018429

PATIENT
  Age: 58 Year
  Sex: Female

DRUGS (4)
  1. TASIGNA [Suspect]
     Active Substance: NILOTINIB
     Dosage: 600 MG, UNK
     Route: 065
     Dates: start: 20150216
  2. TASIGNA [Suspect]
     Active Substance: NILOTINIB
     Indication: CHRONIC MYELOID LEUKAEMIA
     Dosage: 800 MG, QD
     Route: 065
     Dates: start: 20141025, end: 20150215
  3. GLIVEC [Suspect]
     Active Substance: IMATINIB MESYLATE
     Indication: PRODUCT USED FOR UNKNOWN INDICATION
     Dosage: 400 MG, QD
     Route: 065
     Dates: start: 20060210, end: 20140719
  4. IMAKREBIN [Suspect]
     Active Substance: IMATINIB MESYLATE
     Indication: PRODUCT USED FOR UNKNOWN INDICATION
     Dosage: 400 MG, QD
     Route: 065

REACTIONS (13)
  - Cardiac disorder [Unknown]
  - Palpitations [Unknown]
  - Spinal myelogram abnormal [Unknown]
  - Ventricular arrhythmia [Unknown]
  - Dyspepsia [Unknown]
  - Hypoaesthesia [Unknown]
  - Choking [Unknown]
  - Eructation [Unknown]
  - Cardiac discomfort [Unknown]
  - Sinus rhythm [Unknown]
  - Abdominal pain upper [Unknown]
  - Atrial fibrillation [Unknown]
  - Cytogenetic analysis abnormal [Unknown]
